FAERS Safety Report 5419329-3 (Version None)
Quarter: 2007Q3

REPORT INFORMATION
  Report Type: 
  Country: None (occurrence: None)
  Receive Date: 20070820
  Receipt Date: 20070816
  Transmission Date: 20080115
  Serious: Yes (Hospitalization)
  Sender: FDA-Public Use
  Company Number: DE-BRISTOL-MYERS SQUIBB COMPANY-13879903

PATIENT
  Age: 54 Year
  Sex: Female
  Weight: 73 kg

DRUGS (6)
  1. CYCLOPHOSPHAMIDE [Suspect]
     Indication: BREAST CANCER
     Route: 042
     Dates: start: 20050426
  2. PACLITAXEL [Suspect]
     Indication: BREAST CANCER
     Route: 042
  3. EPIRUBICIN [Suspect]
     Indication: BREAST CANCER
     Route: 042
     Dates: start: 20050426
  4. PEGFILGRASTIM [Concomitant]
     Route: 058
     Dates: start: 20050426
  5. CIPROFLOXACIN [Concomitant]
     Route: 048
     Dates: start: 20050426
  6. DARBEPOETIN ALFA [Concomitant]
     Route: 058
     Dates: start: 20050426

REACTIONS (1)
  - DEEP VEIN THROMBOSIS [None]
